FAERS Safety Report 8545009-1 (Version None)
Quarter: 2012Q3

REPORT INFORMATION
  Report Type: 
  Country: None (occurrence: None)
  Receive Date: 20120727
  Receipt Date: 20120719
  Transmission Date: 20120928
  Serious: Yes (Other)
  Sender: FDA-Public Use
  Company Number: JP-GLAXOSMITHKLINE-B0816233A

PATIENT
  Sex: Male

DRUGS (9)
  1. LAMICTAL [Suspect]
     Dosage: 100MG PER DAY
     Route: 048
     Dates: end: 20120515
  2. LAMICTAL [Suspect]
     Indication: BIPOLAR DISORDER
     Dosage: 25MG PER DAY
     Route: 048
     Dates: start: 20111130
  3. LITHIUM CARBONATE [Concomitant]
     Route: 065
  4. LAMICTAL [Suspect]
     Dosage: 200MG PER DAY
     Route: 048
     Dates: start: 20120516, end: 20120613
  5. REFLEX (JAPAN) [Concomitant]
     Indication: PRODUCT USED FOR UNKNOWN INDICATION
     Route: 065
  6. LEXOTAN [Concomitant]
     Indication: INSOMNIA
     Route: 048
     Dates: start: 20111228, end: 20120613
  7. FAMOTIDINE [Concomitant]
     Indication: ABDOMINAL DISCOMFORT
     Dosage: 20MG PER DAY
     Route: 048
     Dates: start: 20120208, end: 20120516
  8. AMOXAPINE [Concomitant]
     Dosage: 50MG PER DAY
     Route: 065
  9. AMOXAPINE [Concomitant]
     Dosage: 150MG PER DAY
     Route: 065

REACTIONS (4)
  - MANIA [None]
  - LOGORRHOEA [None]
  - LISTLESS [None]
  - IRRITABILITY [None]
